FAERS Safety Report 21041884 (Version 3)
Quarter: 2022Q4

REPORT INFORMATION
  Report Type: Spontaneous
  Country: US (occurrence: US)
  Receive Date: 20220705
  Receipt Date: 20221213
  Transmission Date: 20230113
  Serious: No
  Sender: FDA-Public Use
  Company Number: US-GLAXOSMITHKLINE-US2022101318

PATIENT
  Sex: Female

DRUGS (3)
  1. ZEJULA [Suspect]
     Active Substance: NIRAPARIB
     Indication: Ovarian cancer
     Dosage: 200 MG, QD
     Route: 048
     Dates: start: 20220609
  2. ZEJULA [Suspect]
     Active Substance: NIRAPARIB
     Dosage: 100 MG, QD, AM
  3. ZEJULA [Suspect]
     Active Substance: NIRAPARIB
     Dosage: 100 MG, QD

REACTIONS (10)
  - Fatigue [Unknown]
  - Adverse drug reaction [Unknown]
  - White blood cell count decreased [Not Recovered/Not Resolved]
  - Blood glucose increased [Unknown]
  - Dry mouth [Unknown]
  - Constipation [Unknown]
  - Nausea [Unknown]
  - Insomnia [Unknown]
  - Lymphocyte count decreased [Unknown]
  - Neuralgia [Unknown]
